FAERS Safety Report 23523071 (Version 1)
Quarter: 2024Q1

REPORT INFORMATION
  Report Type: Spontaneous
  Country: US (occurrence: None)
  Receive Date: 20240214
  Receipt Date: 20240214
  Transmission Date: 20240410
  Serious: Yes (Hospitalization)
  Sender: FDA-Public Use
  Company Number: None

PATIENT
  Sex: Male

DRUGS (2)
  1. VYNDAMAX [Suspect]
     Active Substance: TAFAMIDIS
     Indication: Anaemia
     Dosage: FREQUENCY : DAILY;?
     Route: 048
     Dates: start: 202201
  2. ELOQUIST [Concomitant]

REACTIONS (1)
  - Hospitalisation [None]
